FAERS Safety Report 19885283 (Version 2)
Quarter: 2021Q4

REPORT INFORMATION
  Report Type: Spontaneous
  Country: US (occurrence: US)
  Receive Date: 20210927
  Receipt Date: 20211012
  Transmission Date: 20220303
  Serious: No
  Sender: FDA-Public Use
  Company Number: US-ORGANON-O2109USA001247

PATIENT
  Sex: Female
  Weight: 138.18 kg

DRUGS (2)
  1. NEXPLANON [Suspect]
     Active Substance: ETONOGESTREL
     Indication: Contraception
     Dosage: 1 IMPLANT FOR 3 YEARS IN LEFT ARM (STRENGTH 68 MILLIGRAM)
     Dates: start: 20200528, end: 20210914
  2. NEXPLANON [Suspect]
     Active Substance: ETONOGESTREL
     Indication: Contraception

REACTIONS (2)
  - Device breakage [Recovered/Resolved]
  - Menstruation irregular [Unknown]
